FAERS Safety Report 5797929-9 (Version None)
Quarter: 2008Q3

REPORT INFORMATION
  Report Type: 
  Country: None (occurrence: None)
  Receive Date: 20080702
  Receipt Date: 20080618
  Transmission Date: 20090109
  Serious: Yes (Death, Hospitalization)
  Sender: FDA-Public Use
  Company Number: MX-ELI_LILLY_AND_COMPANY-MX200806004567

PATIENT
  Age: 38 Year
  Sex: Female
  Weight: 60 kg

DRUGS (2)
  1. XIGRIS [Suspect]
     Indication: ABDOMINAL SEPSIS
     Dosage: UNK, UNKNOWN
     Route: 065
  2. CLEXANE [Concomitant]
     Indication: PROPHYLAXIS
     Dosage: UNK, UNKNOWN
     Route: 065

REACTIONS (4)
  - BLOOD PRESSURE FLUCTUATION [None]
  - BRAIN DEATH [None]
  - HAEMORRHAGE INTRACRANIAL [None]
  - POST PROCEDURAL HAEMORRHAGE [None]
